FAERS Safety Report 7798403-0 (Version None)
Quarter: 2011Q4

REPORT INFORMATION
  Report Type: 
  Country: None (occurrence: None)
  Receive Date: 20111005
  Receipt Date: 20110928
  Transmission Date: 20120403
  Serious: Yes (Other)
  Sender: FDA-Public Use
  Company Number: US-MYLANLABS-2011S1019317

PATIENT
  Age: 29 Year
  Sex: Female

DRUGS (1)
  1. AMNESTEEM [Suspect]
     Dates: start: 20110902, end: 20110913

REACTIONS (1)
  - MATERNAL EXPOSURE DURING PREGNANCY [None]
